FAERS Safety Report 16536498 (Version 1)
Quarter: 2019Q3

REPORT INFORMATION
  Report Type: Spontaneous
  Country: FR (occurrence: FR)
  Receive Date: 20190706
  Receipt Date: 20190706
  Transmission Date: 20191004
  Serious: Yes (Other)
  Sender: FDA-Public Use
  Company Number: FR-AUROBINDO-AUR-APL-2019-038226

PATIENT

DRUGS (3)
  1. TERBINAFINE. [Concomitant]
     Active Substance: TERBINAFINE
     Indication: SCEDOSPORIUM INFECTION
     Dosage: UNK
     Route: 065
  2. VORICONAZOLE. [Suspect]
     Active Substance: VORICONAZOLE
     Indication: SCEDOSPORIUM INFECTION
     Dosage: 400 MILLIGRAM, ONCE A DAY
     Route: 048
  3. MILTEFOSINE [Concomitant]
     Active Substance: MILTEFOSINE
     Indication: SCEDOSPORIUM INFECTION
     Dosage: 150 MILLIGRAM, ONCE A DAY (50 MG, EVERY 8 HOURS)
     Route: 065

REACTIONS (2)
  - Drug level below therapeutic [Recovering/Resolving]
  - Drug ineffective [Recovering/Resolving]
